FAERS Safety Report 4283239-8 (Version None)
Quarter: 2004Q1

REPORT INFORMATION
  Report Type: 
  Country: None (occurrence: None)
  Receive Date: 20040129
  Receipt Date: 20040116
  Transmission Date: 20041129
  Serious: Yes (Hospitalization)
  Sender: FDA-Public Use
  Company Number: FR-JNJFOC-20040103131

PATIENT
  Age: 67 Year
  Sex: Male

DRUGS (1)
  1. RISPERDAL [Suspect]
     Indication: DRUG USE FOR UNKNOWN INDICATION
     Dosage: 1 MG, IN 1 DAY, ORAL
     Route: 048

REACTIONS (3)
  - COGWHEEL RIGIDITY [None]
  - GLAUCOMA [None]
  - TREMOR [None]
